FAERS Safety Report 9902601 (Version 2)
Quarter: 2014Q1

REPORT INFORMATION
  Report Type: Spontaneous
  Country: US (occurrence: US)
  Receive Date: 20140217
  Receipt Date: 20140217
  Transmission Date: 20141002
  Serious: No
  Sender: FDA-Public Use
  Company Number: US-GILEAD-2011-0044594

PATIENT
  Sex: Male

DRUGS (5)
  1. LETAIRIS [Suspect]
     Indication: PULMONARY HYPERTENSION
     Dosage: 5 MG, UNK
     Route: 048
     Dates: start: 20110325
  2. LETAIRIS [Suspect]
     Indication: HEREDITARY HAEMORRHAGIC TELANGIECTASIA
  3. TYVASO [Concomitant]
     Dosage: 5 MG, UNK
     Route: 048
     Dates: start: 20110325
  4. LITHIUM [Concomitant]
  5. ABILIFY [Concomitant]

REACTIONS (2)
  - Syncope [Unknown]
  - Dizziness [Unknown]
